FAERS Safety Report 7229054-4 (Version None)
Quarter: 2011Q1

REPORT INFORMATION
  Report Type: 
  Country: None (occurrence: None)
  Receive Date: 20110117
  Receipt Date: 20110111
  Transmission Date: 20110831
  Serious: Yes (Other)
  Sender: FDA-Public Use
  Company Number: PHHY2010FR80387

PATIENT
  Age: 62 Year
  Sex: Male

DRUGS (2)
  1. STALEVO 100 [Suspect]
     Indication: PARKINSON'S DISEASE
     Dosage: UNK
  2. REQUIP [Suspect]
     Indication: PARKINSON'S DISEASE
     Dosage: UNK

REACTIONS (2)
  - LIBIDO INCREASED [None]
  - OBSESSIVE THOUGHTS [None]
